FAERS Safety Report 12695236 (Version 1)
Quarter: 2016Q3

REPORT INFORMATION
  Report Type: Report from Study
  Country: US (occurrence: US)
  Receive Date: 20160829
  Receipt Date: 20160829
  Transmission Date: 20161109
  Serious: Yes (Other)
  Sender: FDA-Public Use
  Company Number: US-BIOGEN-2016BI00239226

PATIENT
  Age: 63 Year
  Sex: Female
  Weight: 84.9 kg

DRUGS (2)
  1. TECFIDERA [Suspect]
     Active Substance: DIMETHYL FUMARATE
     Indication: MULTIPLE SCLEROSIS
     Route: 048
     Dates: start: 20140101
  2. TECFIDERA [Suspect]
     Active Substance: DIMETHYL FUMARATE
     Route: 048
     Dates: start: 20140722

REACTIONS (8)
  - Hypertonic bladder [Unknown]
  - Spinal compression fracture [Unknown]
  - Dyspnoea [Unknown]
  - Tremor [Unknown]
  - Hand fracture [Unknown]
  - Flushing [Unknown]
  - Muscular weakness [Unknown]
  - Fall [Recovered/Resolved]

NARRATIVE: CASE EVENT DATE: 201601
